FAERS Safety Report 6499515-4 (Version None)
Quarter: 2009Q4

REPORT INFORMATION
  Report Type: 
  Country: None (occurrence: None)
  Receive Date: 20091215
  Receipt Date: 20091207
  Transmission Date: 20100525
  Serious: Yes (Hospitalization)
  Sender: FDA-Public Use
  Company Number: PH-ABBOTT-09P-128-0612849-00

PATIENT
  Age: 6 Year
  Sex: Female

DRUGS (1)
  1. KLARICID SUSPENSION [Suspect]
     Indication: RESPIRATORY TRACT INFECTION
     Route: 048
     Dates: start: 20091130, end: 20091203

REACTIONS (2)
  - DEHYDRATION [None]
  - DIARRHOEA [None]
